FAERS Safety Report 10914221 (Version 2)
Quarter: 2015Q1

REPORT INFORMATION
  Report Type: Spontaneous
  Country: US (occurrence: None)
  Receive Date: 20150311
  Receipt Date: 20150327
  Transmission Date: 20150721
  Serious: Yes (Other)
  Sender: FDA-Public Use
  Company Number: CIO15014218

PATIENT
  Sex: Female

DRUGS (1)
  1. VICKS NYQUIL [Suspect]
     Active Substance: ACETAMINOPHEN\DEXTROMETHORPHAN HYDROBROMIDE\DOXYLAMINE SUCCINATE
     Dosage: 1 DF
     Route: 048
     Dates: start: 1998, end: 1998

REACTIONS (3)
  - Cardioversion [None]
  - Hyperhidrosis [None]
  - Palpitations [None]
